FAERS Safety Report 9156782 (Version 1)
Quarter: 2013Q1

REPORT INFORMATION
  Report Type: Spontaneous
  Country: IL (occurrence: IL)
  Receive Date: 20130312
  Receipt Date: 20130312
  Transmission Date: 20140127
  Serious: Yes (Hospitalization, Other)
  Sender: FDA-Public Use
  Company Number: IL-AMGEN-ISRSP2013016706

PATIENT
  Age: 50 Year
  Sex: Male

DRUGS (5)
  1. ENBREL [Suspect]
     Indication: ANKYLOSING SPONDYLITIS
     Dosage: 25.0 MG, 2X/WEEK
     Route: 058
     Dates: start: 200506, end: 200511
  2. ASPIRIN [Concomitant]
     Dosage: UNK
     Route: 048
  3. DISOTHIAZIDE [Concomitant]
     Dosage: UNK
     Route: 048
  4. LERCANIDIPINE [Concomitant]
     Dosage: UNK
     Route: 048
  5. NORMITEN [Concomitant]
     Dosage: UNK
     Route: 048

REACTIONS (3)
  - Local swelling [Recovering/Resolving]
  - Hypertension [Recovering/Resolving]
  - Condition aggravated [Recovering/Resolving]
